FAERS Safety Report 5065608-1 (Version None)
Quarter: 2006Q3

REPORT INFORMATION
  Report Type: 
  Country: None (occurrence: None)
  Receive Date: 20060731
  Receipt Date: 20060719
  Transmission Date: 20061208
  Serious: Yes (Hospitalization)
  Sender: FDA-Public Use
  Company Number: US-AMGEN-US187090

PATIENT
  Sex: Female

DRUGS (2)
  1. KINERET [Suspect]
     Indication: RHEUMATOID ARTHRITIS
     Route: 058
     Dates: start: 20030130, end: 20060701
  2. IMURAN [Concomitant]

REACTIONS (6)
  - BRONCHITIS [None]
  - CYST [None]
  - PAIN IN EXTREMITY [None]
  - PLANTAR FASCIITIS [None]
  - SKIN CANCER [None]
  - SKIN LESION [None]
